FAERS Safety Report 10010914 (Version 1)
Quarter: 2014Q1

REPORT INFORMATION
  Report Type: Spontaneous
  Country: US (occurrence: US)
  Receive Date: 20140314
  Receipt Date: 20140314
  Transmission Date: 20141002
  Serious: No
  Sender: FDA-Public Use
  Company Number: US-DRREDDYS-USA/USA/13/0029599

PATIENT
  Age: 36 Year
  Sex: Male

DRUGS (1)
  1. CETIRIZINE [Suspect]
     Indication: HYPERSENSITIVITY
     Route: 048
     Dates: start: 20130510, end: 20130513

REACTIONS (2)
  - Drug ineffective [Unknown]
  - Product quality issue [Unknown]
